FAERS Safety Report 6437903-2 (Version None)
Quarter: 2009Q4

REPORT INFORMATION
  Report Type: 
  Country: None (occurrence: None)
  Receive Date: 20091112
  Receipt Date: 20081105
  Transmission Date: 20100525
  Serious: No
  Sender: FDA-Public Use
  Company Number: US-ASTRAZENECA-2009UW16252

PATIENT
  Age: 86 Year
  Sex: Female

DRUGS (4)
  1. PRILOSEC OTC [Suspect]
     Indication: ABDOMINAL DISCOMFORT
     Dosage: 1 TABLET, 1 /DAY FOR 42 DAYS
     Route: 048
     Dates: start: 20080924, end: 20081105
  2. PRINZIDE [Concomitant]
     Dosage: UNKNOWN
  3. VITAMINS NOS [Concomitant]
     Dosage: UNKNOWN
  4. THYROXIN [Concomitant]
     Dosage: UNKNOWN

REACTIONS (2)
  - ASTHENIA [None]
  - DYSPNOEA [None]
